FAERS Safety Report 9374239 (Version 1)
Quarter: 2013Q2

REPORT INFORMATION
  Report Type: Spontaneous
  Country: US (occurrence: None)
  Receive Date: 20130627
  Receipt Date: 20130627
  Transmission Date: 20140414
  Serious: Yes (Other)
  Sender: FDA-Public Use
  Company Number: None

PATIENT
  Age: 50 Year
  Sex: Female
  Weight: 88 kg

DRUGS (1)
  1. DEXILANT [Suspect]
     Indication: GASTROOESOPHAGEAL REFLUX DISEASE
     Dates: start: 20130618, end: 20130625

REACTIONS (8)
  - Dizziness [None]
  - Muscle spasms [None]
  - Pain in extremity [None]
  - Chest pain [None]
  - Dyspnoea [None]
  - Headache [None]
  - Abdominal pain upper [None]
  - Chest discomfort [None]
